FAERS Safety Report 22267269 (Version 22)
Quarter: 2025Q1

REPORT INFORMATION
  Report Type: Spontaneous
  Country: US (occurrence: US)
  Receive Date: 20230428
  Receipt Date: 20250226
  Transmission Date: 20250409
  Serious: Yes (Hospitalization, Other)
  Sender: PFIZER
  Company Number: US-PFIZER INC-PV202300069621

PATIENT
  Age: 63 Year
  Sex: Female
  Weight: 56.6 kg

DRUGS (26)
  1. IBRANCE [Suspect]
     Active Substance: PALBOCICLIB
     Indication: Breast cancer female
     Route: 048
     Dates: start: 20230131
  2. IBRANCE [Suspect]
     Active Substance: PALBOCICLIB
     Route: 048
     Dates: start: 20230131
  3. IBRANCE [Suspect]
     Active Substance: PALBOCICLIB
     Dosage: 125 MG, DAILY
     Route: 048
     Dates: start: 20230321, end: 2023
  4. IBRANCE [Suspect]
     Active Substance: PALBOCICLIB
     Route: 048
     Dates: start: 20230428
  5. IBRANCE [Suspect]
     Active Substance: PALBOCICLIB
     Route: 048
     Dates: start: 20230428
  6. IBRANCE [Suspect]
     Active Substance: PALBOCICLIB
     Route: 048
     Dates: start: 20230603
  7. IBRANCE [Suspect]
     Active Substance: PALBOCICLIB
     Route: 048
     Dates: start: 20230603
  8. IBRANCE [Suspect]
     Active Substance: PALBOCICLIB
     Route: 048
  9. ASPIRIN [Concomitant]
     Active Substance: ASPIRIN
  10. ATENOLOL [Concomitant]
     Active Substance: ATENOLOL
  11. ATORVASTATIN [Concomitant]
     Active Substance: ATORVASTATIN
  12. FUROSEMIDE [Concomitant]
     Active Substance: FUROSEMIDE
  13. DOCONEXENT\ICOSAPENT [Concomitant]
     Active Substance: DOCONEXENT\ICOSAPENT
  14. FERROUS SULFATE [Concomitant]
     Active Substance: FERROUS SULFATE
  15. DULOXETINE [Concomitant]
     Active Substance: DULOXETINE
  16. ONDANSETRON [Concomitant]
     Active Substance: ONDANSETRON
  17. POTASSIUM CHLORIDE [Concomitant]
     Active Substance: POTASSIUM CHLORIDE
  18. RABEPRAZOLE [Concomitant]
     Active Substance: RABEPRAZOLE
  19. TRAZODONE [Concomitant]
     Active Substance: TRAZODONE HYDROCHLORIDE
  20. TRAZODONE [Concomitant]
     Active Substance: TRAZODONE HYDROCHLORIDE
  21. BUPRENORPHINE\NALOXONE [Concomitant]
     Active Substance: BUPRENORPHINE\NALOXONE
  22. CALCIUM +D [CALCIUM CARBONATE;COLECALCIFEROL] [Concomitant]
  23. CELECOXIB [Concomitant]
     Active Substance: CELECOXIB
  24. OXYCODONE HYDROCHLORIDE [Concomitant]
     Active Substance: OXYCODONE HYDROCHLORIDE
  25. MS CONTIN [Concomitant]
     Active Substance: MORPHINE SULFATE
  26. LETROZOLE [Concomitant]
     Active Substance: LETROZOLE

REACTIONS (15)
  - Metabolic encephalopathy [Recovered/Resolved]
  - Urinary tract infection [Recovered/Resolved]
  - Hypocalcaemia [Recovered/Resolved]
  - Arthralgia [Recovered/Resolved]
  - Urinary tract stoma complication [Recovered/Resolved]
  - Urinary tract infection [Recovering/Resolving]
  - Sepsis [Unknown]
  - Thrombocytopenia [Not Recovered/Not Resolved]
  - Acute kidney injury [Unknown]
  - Renal impairment [Recovered/Resolved]
  - Anaemia [Recovered/Resolved]
  - Fatigue [Not Recovered/Not Resolved]
  - Contusion [Not Recovered/Not Resolved]
  - Dyspnoea [Not Recovered/Not Resolved]
  - Peritoneal disorder [Unknown]

NARRATIVE: CASE EVENT DATE: 20230101
